FAERS Safety Report 9197982 (Version 2)
Quarter: 2013Q2

REPORT INFORMATION
  Report Type: Report from Study
  Country: DE (occurrence: DE)
  Receive Date: 20130328
  Receipt Date: 20130513
  Transmission Date: 20140414
  Serious: Yes (Hospitalization)
  Sender: FDA-Public Use
  Company Number: DE-ABBOTT-13P-062-1066059-00

PATIENT
  Age: 70 Year
  Sex: Male
  Weight: 78 kg

DRUGS (7)
  1. HUMIRA [Suspect]
     Indication: RHEUMATOID ARTHRITIS
     Route: 058
     Dates: start: 20120321
  2. RAMIPRIL [Concomitant]
     Indication: HYPERTENSION
     Dosage: 10 MG NOS
     Route: 048
  3. AMLODIPIN [Concomitant]
     Indication: HYPERTENSION
     Dosage: 10 MG NOS
     Route: 048
  4. METHOTREXATE [Concomitant]
     Indication: RHEUMATOID ARTHRITIS
     Dosage: 15 MG WEEKLY
     Dates: end: 20130220
  5. METHOTREXATE [Concomitant]
     Dosage: 20 MG WEEKLY/DOSE INCREASED
     Dates: start: 20130220
  6. GLUCOCORTICOIDS [Concomitant]
     Indication: PRODUCT USED FOR UNKNOWN INDICATION
     Dates: end: 20130220
  7. GLUCOCORTICOIDS [Concomitant]
     Dates: start: 20130220

REACTIONS (5)
  - Lividity [Not Recovered/Not Resolved]
  - Subclavian steal syndrome [Recovered/Resolved]
  - Subclavian artery stenosis [Recovered/Resolved]
  - Pain in extremity [Not Recovered/Not Resolved]
  - Vasculitis [Recovered/Resolved]
